FAERS Safety Report 22389176 (Version 1)
Quarter: 2023Q2

REPORT INFORMATION
  Report Type: Spontaneous
  Country: PL (occurrence: PL)
  Receive Date: 20230531
  Receipt Date: 20230531
  Transmission Date: 20230722
  Serious: Yes (Other)
  Sender: FDA-Public Use
  Company Number: PL-SUN PHARMACEUTICAL INDUSTRIES LTD-2023RR-392121

PATIENT
  Age: 55 Year
  Sex: Male

DRUGS (1)
  1. SUNITINIB [Suspect]
     Active Substance: SUNITINIB
     Indication: Lung neoplasm malignant
     Dosage: 50 MILLIGRAM, FOR 28 DAYS WITH A 14-DAY BREAK
     Route: 065
     Dates: start: 201402

REACTIONS (5)
  - Skin lesion [Unknown]
  - Disease progression [Unknown]
  - Mucosal inflammation [Unknown]
  - Hypothyroidism [Unknown]
  - Neutropenia [Unknown]
